FAERS Safety Report 10956083 (Version 1)
Quarter: 2015Q1

REPORT INFORMATION
  Report Type: Spontaneous
  Country: US (occurrence: None)
  Receive Date: 20150325
  Receipt Date: 20150325
  Transmission Date: 20150721
  Serious: No
  Sender: FDA-Public Use
  Company Number: None

PATIENT
  Age: 39 Year
  Sex: Male

DRUGS (1)
  1. COSENTYX [Suspect]
     Active Substance: SECUKINUMAB
     Indication: PRODUCT USED FOR UNKNOWN INDICATION
     Dosage: (2 PENS); AT WEEKS 0, 2, AND 3, THEN
     Route: 058
     Dates: start: 20150305, end: 20150320

REACTIONS (3)
  - Dizziness [None]
  - Photophobia [None]
  - Headache [None]

NARRATIVE: CASE EVENT DATE: 20150320
